FAERS Safety Report 20146220 (Version 1)
Quarter: 2021Q4

REPORT INFORMATION
  Report Type: Spontaneous
  Country: US (occurrence: None)
  Receive Date: 20211203
  Receipt Date: 20211203
  Transmission Date: 20220303
  Serious: Yes (Hospitalization)
  Sender: FDA-Public Use
  Company Number: None

PATIENT
  Age: 52 Year
  Sex: Female
  Weight: 112.2 kg

DRUGS (2)
  1. CASIRIVIMAB\IMDEVIMAB [Suspect]
     Active Substance: CASIRIVIMAB\IMDEVIMAB
     Indication: COVID-19
     Dosage: OTHER FREQUENCY : ONCE;?
     Route: 058
     Dates: start: 20211126, end: 20211126
  2. PREDNISONE [Concomitant]
     Active Substance: PREDNISONE
     Dates: start: 20211126, end: 20211128

REACTIONS (6)
  - Hypoxia [None]
  - COVID-19 pneumonia [None]
  - Nausea [None]
  - Vomiting [None]
  - Diarrhoea [None]
  - Anosmia [None]

NARRATIVE: CASE EVENT DATE: 20211128
